FAERS Safety Report 21635094 (Version 1)
Quarter: 2022Q4

REPORT INFORMATION
  Report Type: Report from Study
  Country: US (occurrence: US)
  Receive Date: 20221123
  Receipt Date: 20221123
  Transmission Date: 20230113
  Serious: Yes (Hospitalization)
  Sender: FDA-Public Use
  Company Number: US-BAYER-2022A156355

PATIENT
  Age: 72 Year
  Sex: Female
  Weight: 58.05 kg

DRUGS (4)
  1. ADEMPAS [Suspect]
     Active Substance: RIOCIGUAT
     Indication: Pulmonary arterial hypertension
     Dosage: UNK
     Dates: start: 20220921
  2. ADEMPAS [Suspect]
     Active Substance: RIOCIGUAT
     Indication: Pulmonary arterial hypertension
     Dosage: 1.5 MG, TID
     Route: 048
     Dates: start: 2022
  3. ELIQUIS [Concomitant]
     Active Substance: APIXABAN
     Dosage: UNK
  4. DILTIAZEM [Concomitant]
     Active Substance: DILTIAZEM
     Dosage: UNK

REACTIONS (8)
  - Hypotension [None]
  - Fall [None]
  - Asthenia [None]
  - Lung disorder [None]
  - Cardiac disorder [None]
  - Oxygen saturation decreased [None]
  - Migraine [None]
  - Oropharyngeal pain [None]

NARRATIVE: CASE EVENT DATE: 20220101
